FAERS Safety Report 26122884 (Version 1)
Quarter: 2025Q4

REPORT INFORMATION
  Report Type: Spontaneous
  Country: JP (occurrence: JP)
  Receive Date: 20251204
  Receipt Date: 20251204
  Transmission Date: 20260117
  Serious: Yes (Other)
  Sender: BAUSCH AND LOMB
  Company Number: JP-BAUSCH-BH-2025-021370

PATIENT
  Age: 67 Year
  Sex: Female

DRUGS (13)
  1. DEXAMETHASONE [Suspect]
     Active Substance: DEXAMETHASONE
     Indication: Diffuse large B-cell lymphoma
     Route: 065
  2. DEXAMETHASONE [Suspect]
     Active Substance: DEXAMETHASONE
     Dosage: 20 MG DAILY FOR 3 DAYS
     Route: 065
  3. DEXAMETHASONE [Suspect]
     Active Substance: DEXAMETHASONE
     Dosage: FOLLOWED BY 10 MG DAILY FOR 2 DAYS
     Route: 065
  4. RITUXIMAB [Suspect]
     Active Substance: RITUXIMAB
     Indication: Diffuse large B-cell lymphoma
     Dosage: FOLLOWED BY 10 MG DAILY FOR 2 DAYS
     Route: 065
  5. GEMCITABINE [Suspect]
     Active Substance: GEMCITABINE
     Indication: Diffuse large B-cell lymphoma
     Dosage: FOLLOWED BY 10 MG DAILY FOR 2 DAYS
     Route: 065
  6. CISPLATIN [Suspect]
     Active Substance: CISPLATIN
     Indication: Diffuse large B-cell lymphoma
     Dosage: FOLLOWED BY 10 MG DAILY FOR 2 DAYS
     Route: 065
  7. POLATUZUMAB VEDOTIN [Suspect]
     Active Substance: POLATUZUMAB VEDOTIN
     Indication: Diffuse large B-cell lymphoma
     Dosage: FOLLOWED BY 10 MG DAILY FOR 2 DAYS
     Route: 065
  8. CYCLOPHOSPHAMIDE [Suspect]
     Active Substance: CYCLOPHOSPHAMIDE
     Indication: Diffuse large B-cell lymphoma
     Dosage: FOLLOWED BY 10 MG DAILY FOR 2 DAYS
     Route: 065
  9. CYCLOPHOSPHAMIDE [Suspect]
     Active Substance: CYCLOPHOSPHAMIDE
     Route: 065
  10. DOXORUBICIN [Suspect]
     Active Substance: DOXORUBICIN
     Indication: Diffuse large B-cell lymphoma
     Dosage: FOLLOWED BY 10 MG DAILY FOR 2 DAYS
     Route: 065
  11. PREDNISONE [Suspect]
     Active Substance: PREDNISONE
     Indication: Diffuse large B-cell lymphoma
     Dosage: FOLLOWED BY 10 MG DAILY FOR 2 DAYS
     Route: 065
  12. FLUDARABINE [Suspect]
     Active Substance: FLUDARABINE PHOSPHATE
     Indication: Diffuse large B-cell lymphoma
     Dosage: FOLLOWED BY 10 MG DAILY FOR 2 DAYS
     Route: 065
  13. TOCILIZUMAB [Concomitant]
     Active Substance: TOCILIZUMAB
     Indication: Cytokine release syndrome
     Dosage: 8 MG/KG ? 2 DOSES

REACTIONS (3)
  - Cytopenia [Unknown]
  - Toxicity to various agents [Unknown]
  - Polyomavirus-associated nephropathy [Unknown]
